FAERS Safety Report 24847636 (Version 1)
Quarter: 2025Q1

REPORT INFORMATION
  Report Type: Spontaneous
  Country: PT (occurrence: PT)
  Receive Date: 20250116
  Receipt Date: 20250116
  Transmission Date: 20250409
  Serious: Yes (Hospitalization, Other)
  Sender: Steriscience PTE
  Company Number: PT-STERISCIENCE B.V.-2025-ST-000023

PATIENT
  Age: 57 Year
  Sex: Male

DRUGS (3)
  1. AMPICILLIN [Suspect]
     Active Substance: AMPICILLIN
     Indication: Meningitis bacterial
     Route: 065
  2. CEFTRIAXONE [Suspect]
     Active Substance: CEFTRIAXONE
     Indication: Meningitis bacterial
     Route: 065
  3. AZITHROMYCIN [Concomitant]
     Active Substance: AZITHROMYCIN
     Indication: Meningitis bacterial
     Route: 065

REACTIONS (6)
  - Quadriparesis [None]
  - Respiratory failure [Unknown]
  - Areflexia [None]
  - Haemodynamic instability [Unknown]
  - Staphylococcal infection [Unknown]
  - Drug ineffective [Unknown]
